FAERS Safety Report 4933760-1 (Version None)
Quarter: 2006Q1

REPORT INFORMATION
  Report Type: 
  Country: None (occurrence: None)
  Receive Date: 20060306
  Receipt Date: 20051011
  Transmission Date: 20060701
  Serious: Yes (Hospitalization, Other)
  Sender: FDA-Public Use
  Company Number: US-MERCK-0510USA06584

PATIENT
  Age: 48 Year
  Sex: Male
  Weight: 109 kg

DRUGS (2)
  1. VIOXX [Suspect]
     Indication: ARTHRALGIA
     Route: 048
     Dates: start: 20001101, end: 20040901
  2. VIOXX [Suspect]
     Route: 048
     Dates: start: 20020710

REACTIONS (15)
  - ARTHRALGIA [None]
  - CEREBROVASCULAR ACCIDENT [None]
  - CHEST PAIN [None]
  - CORONARY ARTERY DISEASE [None]
  - DYSPNOEA [None]
  - EXTRASYSTOLES [None]
  - HYPERTENSION [None]
  - HYPOAESTHESIA [None]
  - INTERVERTEBRAL DISC DISORDER [None]
  - JOINT SWELLING [None]
  - LUMBAR RADICULOPATHY [None]
  - MYOCARDIAL INFARCTION [None]
  - PALPITATIONS [None]
  - SHOULDER PAIN [None]
  - VASCULAR INSUFFICIENCY [None]
